FAERS Safety Report 9722003 (Version 7)
Quarter: 2014Q2

REPORT INFORMATION
  Report Type: Spontaneous
  Country: US (occurrence: US)
  Receive Date: 20131202
  Receipt Date: 20140508
  Transmission Date: 20141212
  Serious: No
  Sender: FDA-Public Use
  Company Number: US-BIOGENIDEC-2013BI050655

PATIENT
  Age: 40 Year
  Sex: Female
  Weight: 91 kg

DRUGS (19)
  1. TECFIDERA [Suspect]
     Indication: MULTIPLE SCLEROSIS
     Dates: start: 2013
  2. TECFIDERA [Suspect]
     Indication: MULTIPLE SCLEROSIS
     Route: 048
     Dates: start: 20130601
  3. AMPYRA [Concomitant]
     Indication: GAIT DISTURBANCE
     Route: 048
     Dates: start: 201201, end: 20130509
  4. AMPYRA [Concomitant]
     Indication: GAIT DISTURBANCE
     Route: 048
     Dates: start: 201305
  5. ABILIFY [Concomitant]
     Route: 048
  6. WELLBUTRIN [Concomitant]
     Route: 048
  7. PROVIGIL [Concomitant]
     Route: 048
     Dates: start: 2005
  8. NUEDEXTA [Concomitant]
  9. NUEDEXTA [Concomitant]
  10. LEVOTHYROXINE SODIUM [Concomitant]
     Route: 048
  11. LEVOTHYROXINE SODIUM [Concomitant]
     Route: 048
  12. ADDERALL [Concomitant]
     Route: 048
     Dates: start: 201305
  13. ADDERALL [Concomitant]
     Route: 048
  14. DITROPAN [Concomitant]
  15. OPANA [Concomitant]
  16. ZANTAC [Concomitant]
  17. IMODIUM ADVANCED [Concomitant]
  18. TOPAMAX [Concomitant]
  19. CYMBALTA [Concomitant]

REACTIONS (9)
  - Musculoskeletal stiffness [Not Recovered/Not Resolved]
  - Gait disturbance [Not Recovered/Not Resolved]
  - Fatigue [Not Recovered/Not Resolved]
  - Asthenia [Not Recovered/Not Resolved]
  - Stress [Not Recovered/Not Resolved]
  - Memory impairment [Unknown]
  - Pain in extremity [Not Recovered/Not Resolved]
  - Muscle spasms [Not Recovered/Not Resolved]
  - Somatisation disorder [Recovered/Resolved]
